FAERS Safety Report 23204577 (Version 1)
Quarter: 2023Q4

REPORT INFORMATION
  Report Type: Spontaneous
  Country: US (occurrence: US)
  Receive Date: 20231120
  Receipt Date: 20231120
  Transmission Date: 20240110
  Serious: No
  Sender: FDA-Public Use
  Company Number: US-Ipsen Biopharmaceuticals, Inc.-2023-25969

PATIENT
  Age: 53 Year
  Sex: Female

DRUGS (4)
  1. DYSPORT [Suspect]
     Active Substance: ABOBOTULINUMTOXINA
     Indication: Skin cosmetic procedure
     Route: 065
     Dates: start: 20230427, end: 20230427
  2. DYSPORT [Suspect]
     Active Substance: ABOBOTULINUMTOXINA
     Route: 065
     Dates: start: 20231011, end: 20231011
  3. POLYLACTIDE, L- [Suspect]
     Active Substance: POLYLACTIDE, L-
     Indication: Product used for unknown indication
     Route: 065
  4. HYALURONIC ACID [Suspect]
     Active Substance: HYALURONIC ACID
     Indication: Product used for unknown indication
     Route: 065

REACTIONS (1)
  - Nodule [Not Recovered/Not Resolved]

NARRATIVE: CASE EVENT DATE: 20231101
